FAERS Safety Report 15490051 (Version 1)
Quarter: 2018Q4

REPORT INFORMATION
  Report Type: Spontaneous
  Country: DE (occurrence: DE)
  Receive Date: 20181011
  Receipt Date: 20181011
  Transmission Date: 20190205
  Serious: Yes (Other)
  Sender: FDA-Public Use
  Company Number: DE-MYLANLABS-2018M1075084

PATIENT
  Sex: Female

DRUGS (9)
  1. BEVACIZUMAB. [Concomitant]
     Active Substance: BEVACIZUMAB
     Indication: CHEMOTHERAPY
     Dosage: UNK
  2. IRINOTECAN [Suspect]
     Active Substance: IRINOTECAN
     Dosage: UNK
  3. CAPECITABINE. [Concomitant]
     Active Substance: CAPECITABINE
     Indication: CHEMOTHERAPY
     Dosage: UNK
  4. FLUOROURACIL. [Suspect]
     Active Substance: FLUOROURACIL
     Indication: NEUROENDOCRINE TUMOUR
     Dosage: UNK
     Route: 065
  5. IRINOTECAN [Suspect]
     Active Substance: IRINOTECAN
     Indication: RECTAL CANCER
     Dosage: UNK
     Route: 065
  6. CETUXIMAB. [Suspect]
     Active Substance: CETUXIMAB
     Indication: NEUROENDOCRINE TUMOUR
     Dosage: UNK
     Route: 065
  7. FLUOROURACIL. [Suspect]
     Active Substance: FLUOROURACIL
     Indication: RECTAL CANCER
     Dosage: UNK
  8. IRINOTECAN [Suspect]
     Active Substance: IRINOTECAN
     Indication: NEUROENDOCRINE TUMOUR
     Dosage: UNK
  9. CETUXIMAB. [Suspect]
     Active Substance: CETUXIMAB
     Indication: RECTAL CANCER

REACTIONS (2)
  - Toxic skin eruption [Unknown]
  - Off label use [Unknown]
